FAERS Safety Report 15841542 (Version 1)
Quarter: 2018Q4

REPORT INFORMATION
  Report Type: Spontaneous
  Country: US (occurrence: US)
  Receive Date: 20181224
  Receipt Date: 20181224
  Transmission Date: 20190205
  Serious: No
  Sender: FDA-Public Use
  Company Number: None

PATIENT
  Age: 40 Year
  Sex: Male

DRUGS (2)
  1. BUPROPION. [Suspect]
     Active Substance: BUPROPION
     Indication: POSTPARTUM STRESS DISORDER
     Route: 048
     Dates: start: 20181009, end: 20181022
  2. HALOPERIDOL. [Suspect]
     Active Substance: HALOPERIDOL
     Route: 048
     Dates: start: 20181015, end: 20181019

REACTIONS (1)
  - Priapism [None]

NARRATIVE: CASE EVENT DATE: 20181022
